FAERS Safety Report 4736604-6 (Version None)
Quarter: 2005Q3

REPORT INFORMATION
  Report Type: 
  Country: None (occurrence: None)
  Receive Date: 20050804
  Receipt Date: 20050804
  Transmission Date: 20060218
  Serious: No
  Sender: FDA-Public Use
  Company Number: None

PATIENT
  Age: 47 Year
  Sex: Male
  Weight: 89.3586 kg

DRUGS (1)
  1. DAPSONE [Suspect]
     Indication: ARTHROPOD BITE
     Dosage: 50 MG PO
     Route: 048
     Dates: start: 20050725

REACTIONS (1)
  - HAEMOLYTIC ANAEMIA [None]
